FAERS Safety Report 10409260 (Version 2)
Quarter: 2014Q3

REPORT INFORMATION
  Report Type: Spontaneous
  Country: JP (occurrence: None)
  Receive Date: 20140822
  Receipt Date: 20140915
  Transmission Date: 20150326
  Serious: Yes (Other)
  Sender: FDA-Public Use
  Company Number: SP08204

PATIENT
  Age: 84 Year
  Sex: Female

DRUGS (2)
  1. MOVIPREP [Suspect]
     Active Substance: ASCORBIC ACID\POLYETHYLENE GLYCOL 3350\POTASSIUM CHLORIDE\SODIUM ASCORBATE\SODIUM CHLORIDE\SODIUM SULFATE
     Indication: BOWEL PREPARATION
     Route: 048
     Dates: start: 20140808, end: 20140808
  2. MOVIPREP [Suspect]
     Active Substance: ASCORBIC ACID\POLYETHYLENE GLYCOL 3350\POTASSIUM CHLORIDE\SODIUM ASCORBATE\SODIUM CHLORIDE\SODIUM SULFATE
     Route: 048
     Dates: start: 20140808, end: 20140808

REACTIONS (6)
  - Depressed level of consciousness [None]
  - Vomiting [None]
  - Blood pressure systolic decreased [None]
  - Blood pressure decreased [None]
  - Malaise [None]
  - Faeces discoloured [None]

NARRATIVE: CASE EVENT DATE: 20140806
